FAERS Safety Report 23130353 (Version 1)
Quarter: 2023Q4

REPORT INFORMATION
  Report Type: Spontaneous
  Country: US (occurrence: None)
  Receive Date: 20231030
  Receipt Date: 20231030
  Transmission Date: 20240109
  Serious: Yes (Other)
  Sender: FDA-Public Use
  Company Number: None

PATIENT
  Age: 53 Year
  Sex: Female
  Weight: 45 kg

DRUGS (1)
  1. CVS LUBRICANT EYE DROPS 15ML [Suspect]
     Active Substance: PROPYLENE GLYCOL
     Indication: Ocular discomfort
     Dates: start: 20221105, end: 20221105

REACTIONS (2)
  - Vision blurred [None]
  - Eye discharge [None]

NARRATIVE: CASE EVENT DATE: 20221127
